FAERS Safety Report 18154942 (Version 2)
Quarter: 2020Q3

REPORT INFORMATION
  Report Type: Report from Study
  Country: EG (occurrence: EG)
  Receive Date: 20200817
  Receipt Date: 20200831
  Transmission Date: 20201103
  Serious: Yes (Other)
  Sender: FDA-Public Use
  Company Number: EG-REGENERON PHARMACEUTICALS, INC.-2020-70414

PATIENT

DRUGS (10)
  1. EYLEA [Suspect]
     Active Substance: AFLIBERCEPT
     Dosage: UNK, ONCE, LAST INJECTION, LEFT EYE
     Route: 031
     Dates: start: 20200712, end: 20200712
  2. ALPHINTERN [Concomitant]
     Indication: EYE HAEMORRHAGE
     Dosage: 3 DF, QD, IN THE MORNING, IN THE AFTERNOON AND AT NIGHT
     Dates: start: 201909
  3. RUTA C [Concomitant]
     Indication: EYE HAEMORRHAGE
     Dosage: 2 DF, QD, 1 IN THE MORNING AND 1 AT NIGHT
     Dates: start: 201909
  4. INSULIN [Concomitant]
     Active Substance: INSULIN NOS
     Dosage: 20 U, AT NIGHT
     Dates: start: 2010
  5. MAVILOR [Concomitant]
     Indication: HYPERTENSION
     Dosage: 1 DF, QD, IN THE AFTERNOON
     Dates: start: 2018
  6. INSULIN [Concomitant]
     Active Substance: INSULIN NOS
     Indication: DIABETES MELLITUS
     Dosage: 40 U, IN THE MORNING
     Dates: start: 2010
  7. DOXIUM [Concomitant]
     Active Substance: CALCIUM DOBESILATE
     Indication: EYE HAEMORRHAGE
     Dosage: 1 DF, QD, IN THE AFTERNOON
     Dates: start: 201909
  8. EYLEA [Suspect]
     Active Substance: AFLIBERCEPT
     Indication: DIABETIC RETINAL OEDEMA
     Dosage: UNK
     Route: 031
  9. ERASTAPEX TRIO [Concomitant]
     Indication: HYPERTENSION
     Dosage: 1 DF, QD, BEFORE BREAKFAST
     Dates: start: 2019
  10. CRESTOR [Concomitant]
     Active Substance: ROSUVASTATIN CALCIUM
     Indication: LIPIDS ABNORMAL
     Dosage: 1 DF, QD
     Dates: start: 2016

REACTIONS (5)
  - Eye haemorrhage [Recovering/Resolving]
  - Eye haemorrhage [Recovered/Resolved]
  - Coronary arterial stent insertion [Recovered/Resolved]
  - Blindness transient [Recovered/Resolved]
  - Visual impairment [Recovering/Resolving]

NARRATIVE: CASE EVENT DATE: 2016
